FAERS Safety Report 9857609 (Version 2)
Quarter: 2014Q1

REPORT INFORMATION
  Report Type: Report from Study
  Country: CA (occurrence: CA)
  Receive Date: 20140131
  Receipt Date: 20140331
  Transmission Date: 20141002
  Serious: Yes (Other)
  Sender: FDA-Public Use
  Company Number: CA-ROCHE-1340988

PATIENT
  Age: 61 Year
  Sex: Male
  Weight: 75 kg

DRUGS (3)
  1. PEGASYS [Suspect]
     Indication: CHRONIC HEPATITIS C
     Dosage: 0.5 ML PRE-FILLED SYRINGE
     Route: 058
     Dates: start: 20130408
  2. COPEGUS [Suspect]
     Indication: CHRONIC HEPATITIS C
     Dosage: 49 TABLET/WEEK
     Route: 048
     Dates: start: 20130408
  3. VICTRELIS [Suspect]
     Indication: CHRONIC HEPATITIS C
     Route: 048
     Dates: start: 20130506

REACTIONS (1)
  - Lipoma [Recovered/Resolved]
